FAERS Safety Report 8044414-X (Version None)
Quarter: 2012Q1

REPORT INFORMATION
  Report Type: 
  Country: None (occurrence: None)
  Receive Date: 20120113
  Receipt Date: 20120103
  Transmission Date: 20120608
  Serious: Yes (Death)
  Sender: FDA-Public Use
  Company Number: US-SHIONOGI, INC-2012000037

PATIENT
  Age: 38 Year
  Sex: Female

DRUGS (6)
  1. LORAZEPAM [Suspect]
     Dosage: UNK
  2. CITALOPRAM [Suspect]
     Dosage: UNK
  3. METHADONE HCL [Suspect]
     Dosage: UNK
  4. NAPROXEN [Suspect]
     Dosage: UNK
  5. FLUOXETINE [Suspect]
     Dosage: UNK
  6. CETIRIZINE [Suspect]
     Dosage: UNK

REACTIONS (2)
  - CARDIO-RESPIRATORY ARREST [None]
  - COMPLETED SUICIDE [None]
